FAERS Safety Report 5158148-2 (Version None)
Quarter: 2006Q4

REPORT INFORMATION
  Report Type: 
  Country: None (occurrence: None)
  Receive Date: 20061120
  Receipt Date: 20061120
  Transmission Date: 20070319
  Serious: No
  Sender: FDA-Public Use
  Company Number: None

PATIENT
  Age: 14 Year
  Sex: Female
  Weight: 49.8957 kg

DRUGS (1)
  1. ACCUTANE [Suspect]
     Indication: ACNE
     Dosage: 1 CAPSULE 2X DAILY PO
     Route: 048
     Dates: start: 19940405, end: 19941007

REACTIONS (5)
  - DEPRESSION [None]
  - KIDNEY INFECTION [None]
  - MENTAL DISORDER [None]
  - SCAR [None]
  - SUICIDE ATTEMPT [None]
